FAERS Safety Report 12672331 (Version 1)
Quarter: 2016Q3

REPORT INFORMATION
  Report Type: Spontaneous
  Country: US (occurrence: US)
  Receive Date: 20160822
  Receipt Date: 20160822
  Transmission Date: 20161109
  Serious: No
  Sender: FDA-Public Use
  Company Number: US-JNJFOC-20160810047

PATIENT
  Sex: Female
  Weight: 45.36 kg

DRUGS (2)
  1. MENS ROGAINE [Suspect]
     Active Substance: MINOXIDIL
     Route: 061
  2. MENS ROGAINE [Suspect]
     Active Substance: MINOXIDIL
     Indication: ALOPECIA
     Route: 061
     Dates: start: 2015, end: 20160321

REACTIONS (3)
  - Pruritus [Recovering/Resolving]
  - Product use issue [Recovering/Resolving]
  - Intentional product misuse [Recovering/Resolving]

NARRATIVE: CASE EVENT DATE: 2015
